FAERS Safety Report 16840430 (Version 2)
Quarter: 2019Q3

REPORT INFORMATION
  Report Type: Spontaneous
  Country: US (occurrence: US)
  Receive Date: 20190923
  Receipt Date: 20190930
  Transmission Date: 20191005
  Serious: Yes (Other)
  Sender: FDA-Public Use
  Company Number: US-PFIZER INC-2019239360

PATIENT
  Age: 72 Year
  Sex: Female

DRUGS (1)
  1. LORBRENA [Suspect]
     Active Substance: LORLATINIB
     Indication: LUNG NEOPLASM
     Dosage: 100 MG, UNK

REACTIONS (3)
  - Headache [Unknown]
  - Nasopharyngitis [Unknown]
  - Brain oedema [Unknown]
